FAERS Safety Report 9343639 (Version 1)
Quarter: 2013Q2

REPORT INFORMATION
  Report Type: Spontaneous
  Country: CA (occurrence: CA)
  Receive Date: 20130612
  Receipt Date: 20130612
  Transmission Date: 20140414
  Serious: Yes (Other)
  Sender: FDA-Public Use
  Company Number: CA-AMGEN-CANSP2013040934

PATIENT
  Age: 84 Year
  Sex: 0

DRUGS (8)
  1. PROLIA [Suspect]
     Indication: PRODUCT USED FOR UNKNOWN INDICATION
     Dosage: UNK
     Route: 065
  2. ACTONEL [Suspect]
     Route: 048
  3. ALENDRONATE [Suspect]
     Route: 048
  4. DIDROCAL [Concomitant]
  5. EVISTA [Concomitant]
     Dosage: 60 MG, UNK
     Route: 048
  6. FORTEO [Concomitant]
     Route: 058
  7. HORMONES [Concomitant]
  8. MIACALCIN [Concomitant]

REACTIONS (3)
  - Osteoporosis [Unknown]
  - Renal failure [Unknown]
  - Wrist fracture [Unknown]
